FAERS Safety Report 10365103 (Version 1)
Quarter: 2014Q3

REPORT INFORMATION
  Report Type: Spontaneous
  Country: US (occurrence: None)
  Receive Date: 20140805
  Receipt Date: 20140805
  Transmission Date: 20150326
  Serious: No
  Sender: FDA-Public Use
  Company Number: None

PATIENT
  Age: 56 Year
  Sex: Male

DRUGS (1)
  1. SOVALDI [Suspect]
     Active Substance: SOFOSBUVIR
     Dosage: 1 TABLET
     Route: 048
     Dates: start: 20140407

REACTIONS (8)
  - Headache [None]
  - Vision blurred [None]
  - Hair growth abnormal [None]
  - Rash [None]
  - Muscle atrophy [None]
  - Constipation [None]
  - Cough [None]
  - Thyroid disorder [None]

NARRATIVE: CASE EVENT DATE: 20140711
